FAERS Safety Report 6122236-4 (Version None)
Quarter: 2009Q1

REPORT INFORMATION
  Report Type: 
  Country: None (occurrence: None)
  Receive Date: 20090318
  Receipt Date: 20090309
  Transmission Date: 20090719
  Serious: Yes (Other)
  Sender: FDA-Public Use
  Company Number: PHHY2009DK08720

PATIENT
  Age: 29 Year
  Sex: Male

DRUGS (1)
  1. RITALIN TAB [Suspect]
     Indication: ATTENTION DEFICIT/HYPERACTIVITY DISORDER
     Dosage: UNK

REACTIONS (6)
  - APATHY [None]
  - BRAIN INJURY [None]
  - INTENTIONAL DRUG MISUSE [None]
  - PERSONALITY CHANGE [None]
  - PSYCHOTIC DISORDER [None]
  - WRONG TECHNIQUE IN DRUG USAGE PROCESS [None]
